FAERS Safety Report 13738959 (Version 2)
Quarter: 2018Q2

REPORT INFORMATION
  Report Type: Report from Study
  Country: US (occurrence: US)
  Receive Date: 20170710
  Receipt Date: 20180627
  Transmission Date: 20180711
  Serious: Yes (Hospitalization, Other)
  Sender: FDA-Public Use
  Company Number: US-SAOL THERAPEUTICS-2017SAO01057

PATIENT
  Age: 39 Year
  Sex: Female

DRUGS (2)
  1. COMPOUNDED BACLOFEN [Suspect]
     Active Substance: BACLOFEN
     Dosage: 27.717 ?G, \DAY
     Route: 037
     Dates: start: 20170303
  2. MORPHINE [Suspect]
     Active Substance: MORPHINE
     Dosage: 1.8478 MG, \DAY
     Route: 037
     Dates: start: 20170303

REACTIONS (3)
  - Device failure [Recovered/Resolved]
  - Drug withdrawal syndrome [Recovered/Resolved]
  - Malaise [Recovered/Resolved]

NARRATIVE: CASE EVENT DATE: 20170610
